FAERS Safety Report 6765462-3 (Version None)
Quarter: 2010Q2

REPORT INFORMATION
  Report Type: 
  Country: None (occurrence: None)
  Receive Date: 20100611
  Receipt Date: 20100602
  Transmission Date: 20101027
  Serious: Yes (Disabling)
  Sender: FDA-Public Use
  Company Number: CA-PFIZER INC-2010070243

PATIENT
  Age: 70 Year
  Sex: Female
  Weight: 81.633 kg

DRUGS (9)
  1. LIPITOR [Suspect]
     Dosage: 5 MG, 1X/DAY
     Route: 048
  2. LIPITOR [Suspect]
     Dosage: 10 MG, 1X/DAY
     Route: 048
  3. LIPITOR [Suspect]
     Dosage: 20 MG, 1X/DAY
     Route: 048
  4. LIPITOR [Suspect]
     Dosage: 40 MG, 1X/DAY
     Route: 048
  5. ASAPHEN [Concomitant]
     Dosage: UNK
     Route: 048
  6. SITAGLIPTIN [Concomitant]
     Dosage: UNK
     Route: 048
  7. LOVAZA [Concomitant]
     Dosage: UNK
     Route: 048
  8. PANTOLOC ^NYCOMED^ [Concomitant]
     Dosage: UNK
     Route: 048
  9. SYNTHROID [Concomitant]
     Dosage: UNK
     Route: 048

REACTIONS (7)
  - CONSTIPATION [None]
  - DYSPEPSIA [None]
  - HEADACHE [None]
  - HYPERHIDROSIS [None]
  - NIGHTMARE [None]
  - PALPITATIONS [None]
  - THROAT IRRITATION [None]
